FAERS Safety Report 18809290 (Version 8)
Quarter: 2025Q2

REPORT INFORMATION
  Report Type: Spontaneous
  Country: US (occurrence: US)
  Receive Date: 20210129
  Receipt Date: 20250530
  Transmission Date: 20250717
  Serious: Yes (Hospitalization, Other)
  Sender: PURDUE
  Company Number: US-PURDUE-USA-2020-0199164

PATIENT
  Sex: Male
  Weight: 82 kg

DRUGS (8)
  1. OXYCONTIN [Suspect]
     Active Substance: OXYCODONE HYDROCHLORIDE
     Indication: Product used for unknown indication
     Route: 048
  2. OXYCONTIN [Suspect]
     Active Substance: OXYCODONE HYDROCHLORIDE
     Route: 048
     Dates: start: 2014, end: 2018
  3. OXYCODONE HYDROCHLORIDE [Suspect]
     Active Substance: OXYCODONE HYDROCHLORIDE
     Indication: Pain
     Route: 065
  4. OXYCODONE HYDROCHLORIDE [Suspect]
     Active Substance: OXYCODONE HYDROCHLORIDE
     Route: 065
     Dates: start: 2014, end: 2018
  5. OXYCODONE HYDROCHLORIDE [Suspect]
     Active Substance: OXYCODONE HYDROCHLORIDE
     Indication: Pain
     Route: 048
     Dates: start: 2016, end: 2018
  6. OXYCODONE HYDROCHLORIDE [Suspect]
     Active Substance: OXYCODONE HYDROCHLORIDE
     Route: 048
     Dates: start: 2016, end: 2018
  7. MORPHINE SULFATE [Suspect]
     Active Substance: MORPHINE SULFATE
     Indication: Product used for unknown indication
     Route: 048
  8. TYLENOL [Suspect]
     Active Substance: ACETAMINOPHEN
     Indication: Product used for unknown indication
     Route: 065

REACTIONS (21)
  - Cerebrovascular accident [Unknown]
  - Cerebral thrombosis [Unknown]
  - Loss of consciousness [Unknown]
  - Fall [Unknown]
  - Blood brain barrier defect [Unknown]
  - Cardiac disorder [Unknown]
  - Atrial fibrillation [Not Recovered/Not Resolved]
  - Coma [Recovered/Resolved]
  - Drug dependence [Unknown]
  - Gait disturbance [Unknown]
  - Oropharyngeal discomfort [Unknown]
  - Balance disorder [Unknown]
  - Confusional state [Unknown]
  - Decreased appetite [Unknown]
  - Memory impairment [Unknown]
  - Mood altered [Unknown]
  - Diplopia [Unknown]
  - Asthenia [Unknown]
  - Amnesia [Unknown]
  - Contusion [Unknown]
  - Condition aggravated [Unknown]

NARRATIVE: CASE EVENT DATE: 20180101
